FAERS Safety Report 7246319-0 (Version None)
Quarter: 2011Q1

REPORT INFORMATION
  Report Type: 
  Country: None (occurrence: None)
  Receive Date: 20110126
  Receipt Date: 20101216
  Transmission Date: 20110831
  Serious: Yes (Hospitalization)
  Sender: FDA-Public Use
  Company Number: PHHY2010DE89336

PATIENT
  Sex: Female
  Weight: 65 kg

DRUGS (10)
  1. PANTOPRAZOLE [Concomitant]
     Dates: start: 20091210
  2. DELIX [Concomitant]
     Dates: start: 20100625
  3. TASIGNA [Suspect]
     Indication: CHRONIC MYELOID LEUKAEMIA
     Dosage: 400 MG, DAILY
     Route: 048
     Dates: start: 20090924
  4. SIMVASTATIN [Concomitant]
     Dates: start: 20100616
  5. CETRIZINE [Concomitant]
     Dates: start: 20091109
  6. AGGRENOX [Concomitant]
     Dates: start: 20100625
  7. VALPROIC ACID [Concomitant]
     Dates: start: 20070101
  8. TRAMADOL [Concomitant]
     Dates: start: 20100310
  9. IBUPROFEN [Concomitant]
     Dates: start: 20100331
  10. GASTROSIL [Concomitant]
     Dates: start: 20091210

REACTIONS (10)
  - MUSCULAR WEAKNESS [None]
  - RASH [None]
  - CHEST PAIN [None]
  - COORDINATION ABNORMAL [None]
  - ABDOMINAL PAIN UPPER [None]
  - FATIGUE [None]
  - DYSPEPSIA [None]
  - CORONARY ARTERY STENOSIS [None]
  - LACUNAR INFARCTION [None]
  - DRY SKIN [None]
